FAERS Safety Report 20607082 (Version 1)
Quarter: 2022Q1

REPORT INFORMATION
  Report Type: Spontaneous
  Country: GB (occurrence: GB)
  Receive Date: 20220317
  Receipt Date: 20220317
  Transmission Date: 20220423
  Serious: Yes (Life-Threatening, Disabling, Other)
  Sender: FDA-Public Use
  Company Number: GB-MHRA-MED-202202281324327460-HVSCD

PATIENT
  Age: 50 Year
  Sex: Male
  Weight: 84 kg

DRUGS (2)
  1. CIPROFLOXACIN [Suspect]
     Active Substance: CIPROFLOXACIN
     Dosage: 200 MG, 2X/DAY
     Dates: start: 20210717
  2. FLUOCINOLONE [Suspect]
     Active Substance: FLUOCINOLONE
     Dosage: 200 MG, 2X/DAY
     Dates: start: 20210717

REACTIONS (4)
  - Insomnia [Not Recovered/Not Resolved]
  - Tinnitus [Not Recovered/Not Resolved]
  - Arthralgia [Not Recovered/Not Resolved]
  - Heart rate increased [Not Recovered/Not Resolved]

NARRATIVE: CASE EVENT DATE: 20210717
